FAERS Safety Report 5304525-6 (Version None)
Quarter: 2007Q2

REPORT INFORMATION
  Report Type: 
  Country: None (occurrence: None)
  Receive Date: 20070417
  Receipt Date: 20070417
  Transmission Date: 20071010
  Serious: Yes (Other)
  Sender: FDA-Public Use
  Company Number: None

PATIENT
  Age: 78 Year
  Sex: Male
  Weight: 81.6475 kg

DRUGS (3)
  1. TRIAZOLAM .25 MG INSCRIBED 54 620 [Suspect]
     Indication: ANXIETY
     Dosage: .5 MG PO SINGLE DOSE
     Route: 048
     Dates: start: 20070306
  2. TRIAZOLAM .25 MG INSCRIBED 54 620 [Suspect]
     Indication: SEDATION
     Dosage: .5 MG PO SINGLE DOSE
     Route: 048
     Dates: start: 20070306
  3. MIDAZOLAM 25MG/5ML, BEDFORD LABS [Suspect]
     Indication: ANXIETY
     Dosage: 20 MG PO SINGLE DOSE
     Route: 048
     Dates: start: 20070306

REACTIONS (4)
  - DIZZINESS [None]
  - DIZZINESS POSTURAL [None]
  - GAIT DISTURBANCE [None]
  - MEMORY IMPAIRMENT [None]
